FAERS Safety Report 4836767-8 (Version None)
Quarter: 2005Q4

REPORT INFORMATION
  Report Type: 
  Country: None (occurrence: None)
  Receive Date: 20051121
  Receipt Date: 20051109
  Transmission Date: 20060501
  Serious: Yes (Life-Threatening)
  Sender: FDA-Public Use
  Company Number: US016339

PATIENT
  Age: 63 Year
  Sex: Male

DRUGS (1)
  1. ALERTEC [Suspect]
     Dosage: 400 MG QD ORAL
     Route: 048
     Dates: start: 20050101, end: 20050101

REACTIONS (1)
  - MYOCARDIAL INFARCTION [None]
